FAERS Safety Report 6964385-4 (Version None)
Quarter: 2010Q3

REPORT INFORMATION
  Report Type: 
  Country: None (occurrence: None)
  Receive Date: 20100903
  Receipt Date: 20100820
  Transmission Date: 20110219
  Serious: Yes (Hospitalization)
  Sender: FDA-Public Use
  Company Number: DE-RANBAXY-2010RR-37682

PATIENT
  Age: 30 Year
  Sex: Male

DRUGS (1)
  1. CLINDAMYCIN [Suspect]
     Indication: ANTIBIOTIC PROPHYLAXIS
     Dosage: UNK
     Route: 048
     Dates: start: 20100701

REACTIONS (5)
  - ADMINISTRATION RELATED REACTION [None]
  - ADMINISTRATION SITE PAIN [None]
  - ADVERSE DRUG REACTION [None]
  - FOREIGN BODY [None]
  - HOSPITALISATION [None]
